FAERS Safety Report 7277360-X (Version None)
Quarter: 2011Q1

REPORT INFORMATION
  Report Type: 
  Country: None (occurrence: None)
  Receive Date: 20110207
  Receipt Date: 20110125
  Transmission Date: 20110831
  Serious: Yes (Hospitalization, Other)
  Sender: FDA-Public Use
  Company Number: JP-BAYER-201013676BYL

PATIENT
  Sex: Female

DRUGS (1)
  1. NEXAVAR [Suspect]
     Indication: ACUTE MYELOID LEUKAEMIA
     Dosage: 100 MG, ONCE
     Route: 048
     Dates: start: 20100618, end: 20100621

REACTIONS (4)
  - SCIATICA [None]
  - PANCREATITIS ACUTE [None]
  - DISSEMINATED INTRAVASCULAR COAGULATION [None]
  - RENAL FAILURE ACUTE [None]
